FAERS Safety Report 13733814 (Version 1)
Quarter: 2017Q3

REPORT INFORMATION
  Report Type: Other
  Country: IT (occurrence: IT)
  Receive Date: 20170707
  Receipt Date: 20170707
  Transmission Date: 20171127
  Serious: Yes (Hospitalization)
  Sender: FDA-Public Use
  Company Number: IT-VALIDUS PHARMACEUTICALS LLC-IT-2017VAL001010

PATIENT
  Age: 50 Year
  Sex: Male

DRUGS (8)
  1. FUROSEMIDE. [Suspect]
     Active Substance: FUROSEMIDE
     Indication: OVERDOSE
  2. LYRICA [Suspect]
     Active Substance: PREGABALIN
     Indication: OVERDOSE
  3. FUROSEMIDE. [Suspect]
     Active Substance: FUROSEMIDE
     Indication: SUICIDAL IDEATION
     Dosage: 30 UNIT(S);TOTAL
     Route: 048
     Dates: start: 20160521, end: 20160521
  4. BISOPROLOL FUMARATE. [Suspect]
     Active Substance: BISOPROLOL FUMARATE
     Indication: OVERDOSE
  5. CYMBALTA [Concomitant]
     Active Substance: DULOXETINE HYDROCHLORIDE
     Indication: PRODUCT USED FOR UNKNOWN INDICATION
     Dosage: UNK
  6. BISOPROLOL FUMARATE. [Suspect]
     Active Substance: BISOPROLOL FUMARATE
     Indication: SUICIDAL IDEATION
     Dosage: 60 UNIT(S);TOTAL
     Route: 048
     Dates: start: 20160521, end: 20160521
  7. ASPIRINETTA [Concomitant]
     Active Substance: ASPIRIN
     Indication: PRODUCT USED FOR UNKNOWN INDICATION
     Dosage: UNK
  8. LYRICA [Suspect]
     Active Substance: PREGABALIN
     Indication: SUICIDAL IDEATION
     Dosage: 28 UNIT(S);TOTAL
     Route: 048
     Dates: start: 20160521, end: 20160521

REACTIONS (4)
  - Muscle spasms [Recovering/Resolving]
  - Malaise [Recovering/Resolving]
  - Overdose [Unknown]
  - Drug abuse [Unknown]

NARRATIVE: CASE EVENT DATE: 20160523
